FAERS Safety Report 4334709-5 (Version None)
Quarter: 2004Q2

REPORT INFORMATION
  Report Type: 
  Country: None (occurrence: None)
  Receive Date: 20040405
  Receipt Date: 20040324
  Transmission Date: 20050107
  Serious: Yes (Hospitalization, Other)
  Sender: FDA-Public Use
  Company Number: US-JNJFOC-20040302498

PATIENT
  Age: 44 Year
  Sex: Male

DRUGS (1)
  1. REMICADE [Suspect]
     Indication: ANKYLOSING SPONDYLITIS
     Dosage: INTRAVENOUS
     Route: 042
     Dates: start: 20031001, end: 20040201

REACTIONS (5)
  - ABDOMINAL DISTENSION [None]
  - BRONCHITIS [None]
  - CATHETER RELATED INFECTION [None]
  - MYCOBACTERIA SPUTUM TEST POSITIVE [None]
  - TUBERCULOSIS [None]
